FAERS Safety Report 4284824-X (Version None)
Quarter: 2004Q1

REPORT INFORMATION
  Report Type: 
  Country: None (occurrence: None)
  Receive Date: 20040202
  Receipt Date: 20040121
  Transmission Date: 20041129
  Serious: Yes (Death, Life-Threatening)
  Sender: FDA-Public Use
  Company Number: 03P-062-0244169-00

PATIENT
  Age: 34 Year
  Sex: Male

DRUGS (1)
  1. BIAXIN [Suspect]
     Indication: PNEUMONIA
     Dosage: 500 MG, INTRAVENOUS
     Route: 042
     Dates: start: 20030904, end: 20030906

REACTIONS (11)
  - AGITATION [None]
  - ALCOHOL WITHDRAWAL SYNDROME [None]
  - ALCOHOLISM [None]
  - CONFUSIONAL STATE [None]
  - HEPATIC STEATOSIS [None]
  - HYPERHIDROSIS [None]
  - LOBAR PNEUMONIA [None]
  - PNEUMOCOCCAL SEPSIS [None]
  - PNEUMONIA PNEUMOCOCCAL [None]
  - SHOCK [None]
  - SKIN DISCOLOURATION [None]
